FAERS Safety Report 4317604-7 (Version None)
Quarter: 2004Q1

REPORT INFORMATION
  Report Type: 
  Country: None (occurrence: None)
  Receive Date: 20040315
  Receipt Date: 20021217
  Transmission Date: 20041129
  Serious: Yes (Hospitalization)
  Sender: FDA-Public Use
  Company Number: 200222019GDDC

PATIENT
  Sex: Female

DRUGS (4)
  1. TAXOTERE [Suspect]
     Indication: BREAST CANCER
     Route: 041
     Dates: start: 20021126, end: 20021126
  2. FLUOROURACIL [Suspect]
     Indication: BREAST CANCER
     Route: 040
  3. EPIRUBICIN [Suspect]
     Indication: BREAST CANCER
     Route: 040
  4. CYCLOPHOSPHAMIDE [Suspect]
     Indication: BREAST CANCER
     Route: 040

REACTIONS (3)
  - DIZZINESS [None]
  - NEUTROPENIA [None]
  - PYREXIA [None]
